FAERS Safety Report 8421905-0 (Version None)
Quarter: 2012Q2

REPORT INFORMATION
  Report Type: 
  Country: None (occurrence: None)
  Receive Date: 20120608
  Receipt Date: 20120529
  Transmission Date: 20120825
  Serious: Yes (Hospitalization)
  Sender: FDA-Public Use
  Company Number: US-ELI_LILLY_AND_COMPANY-US201205010827

PATIENT
  Sex: Female

DRUGS (13)
  1. DILTIAZEM [Concomitant]
     Dosage: UNK
  2. MULTIVITAMIN [Concomitant]
     Dosage: UNK
  3. ENTOCORT EC [Concomitant]
     Dosage: UNK
  4. SYNTHROID [Concomitant]
     Dosage: UNK
  5. XOPENEX HFA [Concomitant]
     Dosage: UNK
  6. ULTRACET [Concomitant]
     Dosage: UNK
  7. CALCIUM WITH VITAMIN D [Concomitant]
     Dosage: UNK
  8. COZAAR [Concomitant]
     Dosage: UNK
  9. NEXIUM [Concomitant]
     Dosage: UNK
  10. SPIRIVA [Concomitant]
     Dosage: UNK
  11. ALBUTEROL [Concomitant]
     Dosage: UNK
  12. FORTEO [Suspect]
     Indication: OSTEOPOROSIS
     Dosage: 20 U, QD
     Dates: start: 20120425, end: 20120429
  13. PREDNISONE TAB [Concomitant]
     Indication: PULMONARY FIBROSIS
     Dosage: UNK

REACTIONS (4)
  - DECREASED APPETITE [None]
  - DIZZINESS [None]
  - INNER EAR DISORDER [None]
  - NAUSEA [None]
